FAERS Safety Report 4780630-8 (Version None)
Quarter: 2005Q3

REPORT INFORMATION
  Report Type: 
  Country: None (occurrence: None)
  Receive Date: 20050926
  Receipt Date: 20050913
  Transmission Date: 20060218
  Serious: Yes (Other)
  Sender: FDA-Public Use
  Company Number: 2005127288

PATIENT
  Age: 84 Year
  Sex: Female
  Weight: 63.5036 kg

DRUGS (6)
  1. LIPITOR [Suspect]
     Indication: HYPERCHOLESTEROLAEMIA
     Dosage: 20 MG (20 MG, 1 IN 1 D), ORAL ABOUT TWO YEARS AGO
     Route: 048
  2. AMARYL [Concomitant]
  3. HYDROCHLOROTHIAZIDE [Concomitant]
  4. NORVASC [Concomitant]
  5. POTASSIUM (POTASSIUM) [Concomitant]
  6. FOSAMAX [Concomitant]

REACTIONS (2)
  - CYSTITIS [None]
  - MEDICAL DEVICE COMPLICATION [None]
